FAERS Safety Report 10402234 (Version 2)
Quarter: 2014Q3

REPORT INFORMATION
  Report Type: Spontaneous
  Country: US (occurrence: US)
  Receive Date: 20140822
  Receipt Date: 20140822
  Transmission Date: 20150326
  Serious: Yes (Hospitalization)
  Sender: FDA-Public Use
  Company Number: US-009507513-2009-197231-NL

PATIENT
  Sex: Female
  Weight: 88.45 kg

DRUGS (3)
  1. NUVARING [Suspect]
     Active Substance: ETHINYL ESTRADIOL\ETONOGESTREL
     Indication: CONTRACEPTION
     Dosage: CONTINUING: NO
     Dates: start: 200804, end: 200806
  2. CIPROFLOXACIN. [Concomitant]
     Active Substance: CIPROFLOXACIN
     Indication: INFECTION
     Dosage: 1 DF, BID
     Route: 048
     Dates: start: 20080418, end: 20080518
  3. LECITHIN [Concomitant]
     Active Substance: LECITHIN
     Indication: STOMATITIS
     Dosage: APR2008-DATE USED WITHIN 40 DAYS OF NUVARING
     Dates: start: 2002

REACTIONS (4)
  - Depression [Not Recovered/Not Resolved]
  - Transverse sinus thrombosis [Recovering/Resolving]
  - Cystitis [Unknown]
  - Herpes simplex [Unknown]

NARRATIVE: CASE EVENT DATE: 200804
